FAERS Safety Report 8795834 (Version 4)
Quarter: 2013Q4

REPORT INFORMATION
  Report Type: Report from Study
  Country: GB (occurrence: GB)
  Receive Date: 20120919
  Receipt Date: 20131231
  Transmission Date: 20140711
  Serious: Yes (Hospitalization, Other)
  Sender: FDA-Public Use
  Company Number: GB-SHIRE-ALL1-2012-04350

PATIENT
  Age: 19 Year
  Sex: Male
  Weight: 81.7 kg

DRUGS (5)
  1. ICATIBANT [Suspect]
     Indication: HEREDITARY ANGIOEDEMA
     Dosage: 30 MG, AS REQ^D
     Route: 058
     Dates: start: 20101118, end: 20120904
  2. DANAZOL [Concomitant]
     Indication: PROPHYLAXIS
     Dosage: 100 MG, OTHER (TWICE A WEEK)
     Route: 048
     Dates: start: 20101214
  3. DANAZOL [Concomitant]
     Dosage: 100 MG, OTHER(5 TIMES PER WEEK)
     Route: 048
  4. PREDNISOLONE [Concomitant]
     Indication: SWELLING
     Dosage: 5 MG, UNKNOWN
     Route: 065
     Dates: start: 20120903
  5. CINRYZE [Concomitant]
     Indication: HEREDITARY ANGIOEDEMA
     Dosage: 1500 IU, AS REQ^D
     Route: 042
     Dates: start: 20120928

REACTIONS (1)
  - Gastritis [Recovered/Resolved]
